FAERS Safety Report 8260431-9 (Version None)
Quarter: 2012Q2

REPORT INFORMATION
  Report Type: 
  Country: None (occurrence: None)
  Receive Date: 20120404
  Receipt Date: 20120329
  Transmission Date: 20120825
  Serious: Yes (Other)
  Sender: FDA-Public Use
  Company Number: PHHY2012JP027725

PATIENT
  Age: 64 Year
  Sex: Female

DRUGS (5)
  1. PREDNISOLONE [Suspect]
     Dosage: 5 MG, PER DAY
     Route: 048
  2. PREDNISOLONE [Suspect]
     Dosage: 20 MG, PER DAY
     Route: 048
  3. PREDNISOLONE [Suspect]
     Dosage: 30 MG, PER DAY
     Route: 048
  4. PREDNISOLONE [Suspect]
     Indication: DRUG RASH WITH EOSINOPHILIA AND SYSTEMIC SYMPTOMS
     Dosage: 40 MG, PER DAY
     Route: 048
  5. PREDNISOLONE [Suspect]
     Dosage: 20-40 MG, PER DAY
     Route: 048

REACTIONS (5)
  - ARTHRITIS [None]
  - JOINT SWELLING [None]
  - ERYTHEMA [None]
  - ARTHRALGIA [None]
  - RASH MACULO-PAPULAR [None]
